FAERS Safety Report 4277450-X (Version None)
Quarter: 2004Q1

REPORT INFORMATION
  Report Type: 
  Country: None (occurrence: None)
  Receive Date: 20040122
  Receipt Date: 20031112
  Transmission Date: 20041129
  Serious: Yes (Hospitalization)
  Sender: FDA-Public Use
  Company Number: FR-ROCHE-351523

PATIENT
  Age: 41 Year
  Sex: Female

DRUGS (5)
  1. PEGASYS [Suspect]
     Route: 058
     Dates: start: 20030915, end: 20031017
  2. IBUPROFENE [Suspect]
     Indication: DRUG USE FOR UNKNOWN INDICATION
     Route: 048
  3. REBETOL [Suspect]
     Route: 048
     Dates: start: 20030901, end: 20031024
  4. DIOSMINE [Concomitant]
     Indication: VENOUS INSUFFICIENCY
  5. LEXOMIL [Concomitant]
     Indication: UNEVALUABLE EVENT
     Route: 048

REACTIONS (2)
  - PANCYTOPENIA [None]
  - THROMBOCYTOPENIA [None]
